FAERS Safety Report 12980757 (Version 1)
Quarter: 2016Q4

REPORT INFORMATION
  Report Type: Spontaneous
  Country: US (occurrence: US)
  Receive Date: 20161128
  Receipt Date: 20161128
  Transmission Date: 20170207
  Serious: No
  Sender: FDA-Public Use
  Company Number: US-B.I. PHARMACEUTICALS,INC./RIDGEFIELD-2016-BI-080910

PATIENT
  Sex: Female

DRUGS (1)
  1. FLOMAX [Suspect]
     Active Substance: TAMSULOSIN HYDROCHLORIDE
     Indication: NEPHROLITHIASIS
     Dosage: FORMULATION: CAPSULE; ? ADMINISTRATION CORRECT? NR(NOT REPORTED) ?ACTION(S) TAKEN WITH PRODUCT: NOT
     Route: 065

REACTIONS (7)
  - Unevaluable event [Unknown]
  - Facial bones fracture [Unknown]
  - Pain [Unknown]
  - Loss of consciousness [Unknown]
  - Fall [Recovered/Resolved]
  - Off label use [Unknown]
  - Hand fracture [Unknown]
